FAERS Safety Report 17943513 (Version 1)
Quarter: 2020Q2

REPORT INFORMATION
  Report Type: Spontaneous
  Country: US (occurrence: US)
  Receive Date: 20200625
  Receipt Date: 20200625
  Transmission Date: 20200714
  Serious: No
  Sender: FDA-Public Use
  Company Number: US-TEVA-2020-US-1791611

PATIENT
  Age: 71 Year
  Sex: Female

DRUGS (1)
  1. CARBIDOPA AND LEVODOPA [Suspect]
     Active Substance: CARBIDOPA\LEVODOPA
     Indication: PARKINSON^S DISEASE
     Dosage: I TAKE 1 1/2 PILLS IN THE MORNING AND EVENING AND 2 PILLS MIDDAY?CARBIDOPA-LEVODOPA 25-100
     Route: 065

REACTIONS (1)
  - Dysphemia [Not Recovered/Not Resolved]
